FAERS Safety Report 7483070-6 (Version None)
Quarter: 2011Q2

REPORT INFORMATION
  Report Type: 
  Country: None (occurrence: None)
  Receive Date: 20110516
  Receipt Date: 20110511
  Transmission Date: 20111010
  Serious: Yes (Life-Threatening, Hospitalization)
  Sender: FDA-Public Use
  Company Number: CH-ABBOTT-11P-151-0725431-00

PATIENT
  Age: 36 Year
  Sex: Female

DRUGS (7)
  1. SEROQUEL [Suspect]
     Indication: BIPOLAR DISORDER
     Route: 048
     Dates: end: 20110416
  2. SEROQUEL [Suspect]
     Route: 048
     Dates: start: 20110416, end: 20110418
  3. LORAZEPAM [Suspect]
     Route: 048
     Dates: start: 20110416, end: 20110418
  4. EUTHYROX [Concomitant]
     Indication: PRODUCT USED FOR UNKNOWN INDICATION
  5. DEPAKENE [Suspect]
     Indication: BIPOLAR DISORDER
     Route: 048
     Dates: end: 20110418
  6. LITHIUM SULFATE [Suspect]
     Indication: BIPOLAR DISORDER
     Route: 048
     Dates: end: 20110418
  7. LORAZEPAM [Suspect]
     Indication: DRUG DEPENDENCE
     Route: 048
     Dates: start: 20110408, end: 20110416

REACTIONS (4)
  - ALTERED STATE OF CONSCIOUSNESS [None]
  - CARBON DIOXIDE INCREASED [None]
  - DRUG LEVEL ABOVE THERAPEUTIC [None]
  - RESPIRATORY DEPRESSION [None]
